FAERS Safety Report 9580161 (Version 1)
Quarter: 2013Q4

REPORT INFORMATION
  Report Type: Spontaneous
  Country: US (occurrence: US)
  Receive Date: 20131002
  Receipt Date: 20131002
  Transmission Date: 20140711
  Serious: Yes (Other)
  Sender: FDA-Public Use
  Company Number: PHHY2013US107278

PATIENT
  Age: 30 Year
  Sex: Male

DRUGS (7)
  1. ARIPIPRAZOLE [Suspect]
     Indication: SCHIZOPHRENIA
     Dosage: 25 MG, UNK
  2. QUETIAPINE [Interacting]
     Indication: SCHIZOPHRENIA
     Dosage: 450 MG, UNK
  3. BUSPIRONE [Interacting]
     Indication: SCHIZOPHRENIA
     Dosage: 30 MG, UNK
  4. CLONAZEPAM [Interacting]
     Indication: SCHIZOPHRENIA
     Dosage: 3 MG, UNK
  5. LEXAPRO [Interacting]
     Indication: SCHIZOPHRENIA
     Dosage: 20 MG, UNK
  6. ASENAPINE [Interacting]
     Indication: SCHIZOPHRENIA
     Dosage: 5 MG, BID
     Route: 060
  7. ASENAPINE [Interacting]
     Dosage: 5 M DAILY

REACTIONS (4)
  - Akathisia [Recovering/Resolving]
  - Dysstasia [Unknown]
  - Insomnia [Unknown]
  - Drug interaction [Unknown]
